FAERS Safety Report 7219474-6 (Version None)
Quarter: 2011Q1

REPORT INFORMATION
  Report Type: 
  Country: None (occurrence: None)
  Receive Date: 20110111
  Receipt Date: 20110103
  Transmission Date: 20110831
  Serious: Yes (Other)
  Sender: FDA-Public Use
  Company Number: US-JNJFOC-20110101048

PATIENT
  Age: 80 Year
  Sex: Female
  Weight: 90.72 kg

DRUGS (3)
  1. LISINOPRIL [Concomitant]
     Indication: HYPERTENSION
     Dosage: 10 YEARS
     Route: 065
  2. IMODIUM MULTI-SYMPTOM RELIEF [Suspect]
     Indication: DIARRHOEA
     Dosage: ONE CAPLET, IN EVEY 2-3 MONTHS
     Route: 048
  3. IMODIUM MULTI-SYMPTOM RELIEF [Suspect]
     Route: 048

REACTIONS (4)
  - CHOKING [None]
  - DYSPHAGIA [None]
  - PRESYNCOPE [None]
  - PRODUCT SOLUBILITY ABNORMAL [None]
